FAERS Safety Report 9825987 (Version 2)
Quarter: 2014Q1

REPORT INFORMATION
  Report Type: Spontaneous
  Country: JP (occurrence: JP)
  Receive Date: 20140117
  Receipt Date: 20140122
  Transmission Date: 20141002
  Serious: Yes (Other)
  Sender: FDA-Public Use
  Company Number: JP-JNJFOC-20140105545

PATIENT
  Sex: Female

DRUGS (4)
  1. TRAMCET [Suspect]
     Indication: PROCEDURAL PAIN
     Route: 048
  2. TRAMCET [Suspect]
     Indication: PROCEDURAL PAIN
     Dosage: 1 PER 1 DAY
     Route: 048
  3. TRAMCET [Suspect]
     Indication: PAIN
     Route: 048
  4. TRAMCET [Suspect]
     Indication: PAIN
     Dosage: 1 PER 1 DAY
     Route: 048

REACTIONS (1)
  - Ileus [Recovering/Resolving]
